FAERS Safety Report 6922745-1 (Version None)
Quarter: 2010Q3

REPORT INFORMATION
  Report Type: 
  Country: None (occurrence: None)
  Receive Date: 20100813
  Receipt Date: 20100802
  Transmission Date: 20110219
  Serious: Yes (Death, Life-Threatening, Hospitalization)
  Sender: FDA-Public Use
  Company Number: CO-JNJFOC-20100605190

PATIENT
  Age: 51 Year
  Sex: Male

DRUGS (2)
  1. REMICADE [Suspect]
     Indication: RHEUMATOID ARTHRITIS
     Dosage: RECEIVED 3 INFUSIONS
     Route: 042
     Dates: start: 20100106, end: 20100318
  2. ANALGESIC NOS [Concomitant]

REACTIONS (2)
  - RESPIRATORY FAILURE [None]
  - SEPSIS [None]
